FAERS Safety Report 4878793-9 (Version None)
Quarter: 2006Q1

REPORT INFORMATION
  Report Type: 
  Country: None (occurrence: None)
  Receive Date: 20060112
  Receipt Date: 20060109
  Transmission Date: 20060701
  Serious: Yes (Death)
  Sender: FDA-Public Use
  Company Number: US-BRISTOL-MYERS SQUIBB COMPANY-13240809

PATIENT
  Sex: Female

DRUGS (3)
  1. SINEMET [Suspect]
  2. PRAVACHOL [Suspect]
  3. AVALIDE [Suspect]

REACTIONS (1)
  - DEATH [None]
